FAERS Safety Report 21615774 (Version 1)
Quarter: 2022Q4

REPORT INFORMATION
  Report Type: Spontaneous
  Country: US (occurrence: US)
  Receive Date: 20221118
  Receipt Date: 20221118
  Transmission Date: 20230113
  Serious: Yes (Other)
  Sender: FDA-Public Use
  Company Number: US-BIOGEN-2022BI01169113

PATIENT
  Sex: Female

DRUGS (1)
  1. TECFIDERA [Suspect]
     Active Substance: DIMETHYL FUMARATE
     Indication: Multiple sclerosis
     Route: 050
     Dates: end: 20191202

REACTIONS (5)
  - Mycobacterium avium complex infection [Not Recovered/Not Resolved]
  - Insomnia [Recovered/Resolved]
  - Multiple sclerosis [Unknown]
  - Autoimmune disorder [Unknown]
  - Lung disorder [Unknown]
